FAERS Safety Report 9204881 (Version 1)
Quarter: 2013Q1

REPORT INFORMATION
  Report Type: Spontaneous
  Country: US (occurrence: None)
  Receive Date: 20120709
  Receipt Date: 20120709
  Transmission Date: 20140127
  Serious: No
  Sender: FDA-Public Use
  Company Number: PHEH2011US04341

PATIENT
  Age: 64 Year
  Sex: Male

DRUGS (3)
  1. GLEEVEC [Suspect]
     Route: 048
     Dates: start: 201101
  2. NEXIUM (ESOMEPRAZOLE MAGNESIUM) [Suspect]
  3. NEXIUM (ESOMEPRAZOLE MAGNESIUM) [Suspect]

REACTIONS (5)
  - Gastrooesophageal reflux disease [None]
  - Blood urea nitrogen/creatinine ratio increased [None]
  - Anaemia [None]
  - Sciatica [None]
  - Nausea [None]
